FAERS Safety Report 12965573 (Version 3)
Quarter: 2016Q4

REPORT INFORMATION
  Report Type: Spontaneous
  Country: KR (occurrence: KR)
  Receive Date: 20161122
  Receipt Date: 20161201
  Transmission Date: 20170207
  Serious: Yes (Other)
  Sender: FDA-Public Use
  Company Number: KR-BAYER-2016-217581

PATIENT
  Age: 57 Year
  Sex: Male

DRUGS (1)
  1. NEXAVAR [Suspect]
     Active Substance: SORAFENIB
     Indication: RENAL CELL CARCINOMA
     Dosage: 400 MG, BID
     Route: 048

REACTIONS (5)
  - Skin necrosis [Recovering/Resolving]
  - Pain [Recovering/Resolving]
  - Purpura [Recovering/Resolving]
  - Palpable purpura [Recovering/Resolving]
  - Hypersensitivity vasculitis [Recovering/Resolving]
